FAERS Safety Report 5401489-1 (Version None)
Quarter: 2007Q3

REPORT INFORMATION
  Report Type: 
  Country: None (occurrence: None)
  Receive Date: 20070731
  Receipt Date: 20061031
  Transmission Date: 20080115
  Serious: No
  Sender: FDA-Public Use
  Company Number: A0619753A

PATIENT
  Age: 88 Year
  Sex: Female

DRUGS (8)
  1. DYAZIDE [Suspect]
  2. M.V.I. [Concomitant]
  3. PROTONIX [Concomitant]
  4. CALCIUM SUPPLEMENT [Concomitant]
  5. VISTARIL [Concomitant]
  6. ASPIRIN [Concomitant]
  7. ESCOR [Concomitant]
  8. TEARS (OTC) [Concomitant]

REACTIONS (2)
  - DRUG INEFFECTIVE [None]
  - PHARMACEUTICAL PRODUCT COMPLAINT [None]
